FAERS Safety Report 7049533-2 (Version None)
Quarter: 2010Q4

REPORT INFORMATION
  Report Type: 
  Country: None (occurrence: None)
  Receive Date: 20101018
  Receipt Date: 20101006
  Transmission Date: 20110411
  Serious: Yes (Other)
  Sender: FDA-Public Use
  Company Number: DE-PFIZER INC-2010126576

PATIENT
  Age: 67 Year
  Sex: Female

DRUGS (2)
  1. AROMASIN [Suspect]
     Dosage: UNK
     Dates: start: 20080101, end: 20080101
  2. AROMASIN [Suspect]
     Dosage: UNK
     Dates: start: 20100101

REACTIONS (5)
  - BONE PAIN [None]
  - HYPERHIDROSIS [None]
  - NAUSEA [None]
  - PERIPHERAL VASCULAR DISORDER [None]
  - SYNCOPE [None]
